FAERS Safety Report 10162885 (Version 7)
Quarter: 2015Q3

REPORT INFORMATION
  Report Type: Spontaneous
  Country: US (occurrence: US)
  Receive Date: 20140509
  Receipt Date: 20150706
  Transmission Date: 20151125
  Serious: Yes (Hospitalization, Other)
  Sender: FDA-Public Use
  Company Number: US-009507513-1404USA015571

PATIENT
  Sex: Female
  Weight: 51.7 kg

DRUGS (2)
  1. FOSAMAX PLUS D [Suspect]
     Active Substance: ALENDRONATE SODIUM\CHOLECALCIFEROL
     Indication: PAIN IN EXTREMITY
     Dosage: 70MG/2800 UNITS
     Route: 048
     Dates: end: 20080911
  2. ALENDRONATE SODIUM. [Suspect]
     Active Substance: ALENDRONATE SODIUM
     Indication: OSTEOPOROSIS
     Dosage: 70 MG, UNK
     Route: 048
     Dates: start: 20081010, end: 20110707

REACTIONS (30)
  - Pollakiuria [Recovered/Resolved]
  - Hyperlipidaemia [Unknown]
  - Osteoarthritis [Unknown]
  - Depression [Unknown]
  - Cranioplasty [Unknown]
  - Tremor [Not Recovered/Not Resolved]
  - Low turnover osteopathy [Unknown]
  - Osteopenia [Unknown]
  - Encephalomalacia [Unknown]
  - Urinary tract infection [Unknown]
  - Fall [Unknown]
  - Intramedullary rod insertion [Unknown]
  - Humerus fracture [Unknown]
  - Dysuria [Recovered/Resolved]
  - Off label use [Unknown]
  - Impaired healing [Unknown]
  - Demyelination [Unknown]
  - Cerebral atrophy [Unknown]
  - Arteriosclerosis [Unknown]
  - Intra-cerebral aneurysm operation [Unknown]
  - Gliosis [Unknown]
  - Scoliosis [Unknown]
  - Femur fracture [Unknown]
  - Contusion [Unknown]
  - Anaemia [Unknown]
  - Wrist fracture [Unknown]
  - Insomnia [Unknown]
  - Decreased appetite [Unknown]
  - Sacroiliitis [Unknown]
  - Back pain [Unknown]

NARRATIVE: CASE EVENT DATE: 2003
